FAERS Safety Report 20213301 (Version 1)
Quarter: 2021Q4

REPORT INFORMATION
  Report Type: Spontaneous
  Country: TR (occurrence: TR)
  Receive Date: 20211221
  Receipt Date: 20211221
  Transmission Date: 20220303
  Serious: Yes (Other)
  Sender: FDA-Public Use
  Company Number: TR-Fresenius Kabi-FK202114245

PATIENT
  Age: 19 Year
  Sex: Female

DRUGS (3)
  1. FUROSEMIDE [Suspect]
     Active Substance: FUROSEMIDE
     Indication: Diuretic therapy
     Route: 042
  2. FUROSEMIDE [Suspect]
     Active Substance: FUROSEMIDE
     Dosage: UPTRITRATED
     Route: 042
  3. METOPROLOL [Concomitant]
     Active Substance: METOPROLOL
     Indication: Product used for unknown indication
     Route: 065

REACTIONS (4)
  - Chest pain [Recovered/Resolved]
  - General physical health deterioration [Recovered/Resolved]
  - Exposure during pregnancy [Recovered/Resolved]
  - Hypotension [Recovered/Resolved]
